FAERS Safety Report 16972491 (Version 2)
Quarter: 2019Q4

REPORT INFORMATION
  Report Type: Spontaneous
  Country: GB (occurrence: GB)
  Receive Date: 20191029
  Receipt Date: 20191112
  Transmission Date: 20200122
  Serious: Yes (Other)
  Sender: FDA-Public Use
  Company Number: GB-SAMSUNG BIOEPIS-SB-2019-31363

PATIENT
  Age: 38 Year
  Sex: Female

DRUGS (2)
  1. IMRALDI [Suspect]
     Active Substance: ADALIMUMAB
     Indication: PRODUCT USED FOR UNKNOWN INDICATION
     Dosage: UNKNOWN
     Route: 065
  2. HUMIRA [Suspect]
     Active Substance: ADALIMUMAB
     Indication: PSORIATIC ARTHROPATHY
     Dosage: 40 MG/ 0.4 ML
     Route: 058
     Dates: start: 201903, end: 2019

REACTIONS (5)
  - Haemorrhage subcutaneous [Recovered/Resolved]
  - Haemoptysis [Unknown]
  - Heart rate abnormal [Unknown]
  - Pneumonia [Unknown]
  - Rales [Unknown]

NARRATIVE: CASE EVENT DATE: 2019
